FAERS Safety Report 25792386 (Version 3)
Quarter: 2025Q4

REPORT INFORMATION
  Report Type: Report from Study
  Country: US (occurrence: US)
  Receive Date: 20250911
  Receipt Date: 20251016
  Transmission Date: 20260119
  Serious: Yes (Hospitalization, Other)
  Sender: ABBVIE
  Company Number: US-ABBVIE-5362215

PATIENT
  Age: 64 Year
  Sex: Female

DRUGS (3)
  1. RINVOQ [Suspect]
     Active Substance: UPADACITINIB
     Indication: Rheumatoid arthritis
     Route: 048
     Dates: start: 20231215
  2. RINVOQ [Suspect]
     Active Substance: UPADACITINIB
     Indication: Rheumatoid arthritis
     Dosage: LAST ADMIN DATE 2025
     Route: 048
     Dates: start: 20250818
  3. RINVOQ [Suspect]
     Active Substance: UPADACITINIB
     Indication: Rheumatoid arthritis
     Route: 048
     Dates: start: 20230215

REACTIONS (7)
  - Pleural effusion [Recovering/Resolving]
  - Periodontitis [Not Recovered/Not Resolved]
  - Rheumatoid arthritis [Unknown]
  - Chest discomfort [Recovering/Resolving]
  - Myocardial infarction [Recovering/Resolving]
  - Arthritis [Unknown]
  - Ankle fracture [Not Recovered/Not Resolved]

NARRATIVE: CASE EVENT DATE: 20230101
